FAERS Safety Report 6461819-9 (Version None)
Quarter: 2009Q4

REPORT INFORMATION
  Report Type: 
  Country: None (occurrence: None)
  Receive Date: 20091130
  Receipt Date: 20091119
  Transmission Date: 20100525
  Serious: Yes (Other)
  Sender: FDA-Public Use
  Company Number: PHEH2009US15489

PATIENT
  Sex: Male
  Weight: 82.086 kg

DRUGS (6)
  1. ZOMETA [Suspect]
     Dosage: 3 MG MONTHLY
     Route: 042
     Dates: start: 20081101, end: 20091013
  2. ZOMETA [Suspect]
     Dosage: 4 MG MONTLY
     Route: 042
     Dates: start: 20080716, end: 20090622
  3. AVASTIN [Concomitant]
     Dosage: 820 MG, QW2
     Route: 042
     Dates: start: 20090915
  4. ARANESP [Concomitant]
     Dosage: 200-500
     Route: 058
  5. MORPHINE [Concomitant]
  6. HYDROCODONE [Concomitant]

REACTIONS (8)
  - BONE DEBRIDEMENT [None]
  - BONE DISORDER [None]
  - FATIGUE [None]
  - ORAL PAIN [None]
  - OSTEONECROSIS [None]
  - PELVIC PAIN [None]
  - TOOTH DISORDER [None]
  - TOOTH EXTRACTION [None]
